FAERS Safety Report 8519211 (Version 2)
Quarter: 2012Q4

REPORT INFORMATION
  Report Type: 
  Country: JP (occurrence: JP)
  Receive Date: 20120418
  Receipt Date: 20121026
  Transmission Date: 20130627
  Serious: Yes (Death)
  Sender: FDA-Public Use
  Company Number: JP-SHIRE-ALL1-2012-01921

PATIENT
  Age: 63 Year
  Sex: Male

DRUGS (10)
  1. 405 (LANTHANUM CARBONATE) [Suspect]
     Indication: HYPERPHOSPHATAEMIA
     Dosage: 1000 mg, Unknown
     Route: 048
     Dates: start: 20100211
  2. 405 (LANTHANUM CARBONATE) [Suspect]
     Dosage: 1500 mg, Unknown
     Route: 048
     Dates: start: 20100120, end: 20100210
  3. TANKARU [Concomitant]
     Indication: HYPERPHOSPHATAEMIA
     Dosage: 3000 mg, Unknown
     Route: 048
     Dates: start: 20060807
  4. PHOSBLOCK [Concomitant]
     Indication: HYPERPHOSPHATAEMIA
     Dosage: 2000 mg, Unknown
     Route: 048
     Dates: start: 20081204, end: 20120125
  5. PHOSBLOCK [Concomitant]
     Dosage: 1000 mg, Unknown
     Route: 048
     Dates: start: 20120126
  6. WARKMIN [Concomitant]
     Indication: PRODUCT USED FOR UNKNOWN INDICATION
     Dosage: 0.25 ?g, Unknown
     Route: 048
     Dates: start: 20060706
  7. ADALAT CR [Concomitant]
     Indication: PRODUCT USED FOR UNKNOWN INDICATION
     Dosage: 40 mg, Unknown
     Route: 048
  8. MICARDIS [Concomitant]
     Indication: PRODUCT USED FOR UNKNOWN INDICATION
     Dosage: 40 mg, Unknown
     Route: 048
  9. ACINON [Concomitant]
     Indication: PRODUCT USED FOR UNKNOWN INDICATION
     Dosage: 75 mg, Unknown
     Route: 048
  10. EPOGIN [Concomitant]
     Indication: PRODUCT USED FOR UNKNOWN INDICATION
     Dosage: 3000 IU, 1x/week
     Route: 042

REACTIONS (3)
  - Renal failure chronic [Fatal]
  - Cerebral disorder [Fatal]
  - Cardiovascular disorder [Fatal]
